FAERS Safety Report 25805885 (Version 2)
Quarter: 2025Q4

REPORT INFORMATION
  Report Type: Spontaneous
  Country: US (occurrence: US)
  Receive Date: 20250916
  Receipt Date: 20251009
  Transmission Date: 20260118
  Serious: Yes (Life-Threatening, Hospitalization)
  Sender: ACCORD
  Company Number: US-MLMSERVICE-20250828-PI627588-00108-1

PATIENT
  Age: 40 Year
  Sex: Male

DRUGS (1)
  1. CLOZAPINE [Suspect]
     Active Substance: CLOZAPINE
     Indication: Product used for unknown indication
     Dosage: INGESTION OF AN UNKNOWN QUANTITY OF CLOZAPINE, ESTIMATED AT 50 OF 1 MG TABLETS.
     Route: 048

REACTIONS (1)
  - Suicide attempt [Unknown]
